FAERS Safety Report 24860900 (Version 1)
Quarter: 2025Q1

REPORT INFORMATION
  Report Type: Report from Study
  Country: US (occurrence: US)
  Receive Date: 20250120
  Receipt Date: 20250120
  Transmission Date: 20250408
  Serious: Yes (Death, Other)
  Sender: ALEXION PHARMACEUTICALS
  Company Number: US-AstraZeneca-CH-00786981A

PATIENT
  Age: 78 Year
  Weight: 74.842 kg

DRUGS (4)
  1. BENRALIZUMAB [Suspect]
     Active Substance: BENRALIZUMAB
     Indication: Asthma
  2. ADVAIR HFA [Concomitant]
     Active Substance: FLUTICASONE PROPIONATE\SALMETEROL XINAFOATE
     Route: 065
  3. CARAFATE [Concomitant]
     Active Substance: SUCRALFATE
     Route: 065
  4. TAGRISSO [Concomitant]
     Active Substance: OSIMERTINIB
     Route: 065

REACTIONS (1)
  - Death [Fatal]
